FAERS Safety Report 9473303 (Version 1)
Quarter: 2013Q3

REPORT INFORMATION
  Report Type: Spontaneous
  Country: US (occurrence: US)
  Receive Date: 20130823
  Receipt Date: 20130823
  Transmission Date: 20140515
  Serious: No
  Sender: FDA-Public Use
  Company Number: US-BRISTOL-MYERS SQUIBB COMPANY-18867952

PATIENT
  Age: 82 Year
  Sex: Female
  Weight: 69.84 kg

DRUGS (6)
  1. SPRYCEL [Suspect]
     Indication: CHRONIC MYELOID LEUKAEMIA
     Dosage: ALSO ON 03MAY20113
  2. ATENOLOL [Concomitant]
  3. BABY ASPIRIN [Concomitant]
  4. LOSARTAN [Concomitant]
  5. CLOPIDOGREL BISULFATE [Concomitant]
  6. CRESTOR [Concomitant]

REACTIONS (4)
  - Diarrhoea [Unknown]
  - Decreased appetite [Unknown]
  - Asthenia [Unknown]
  - Rash [Unknown]
